FAERS Safety Report 25281408 (Version 2)
Quarter: 2025Q2

REPORT INFORMATION
  Report Type: Spontaneous
  Country: JP (occurrence: JP)
  Receive Date: 20250508
  Receipt Date: 20250517
  Transmission Date: 20250717
  Serious: No
  Sender: AMGEN
  Company Number: JP-KYOWAKIRIN-2025KK008076

PATIENT
  Age: 78 Year
  Sex: Male

DRUGS (1)
  1. PEGFILGRASTIM [Suspect]
     Active Substance: PEGFILGRASTIM
     Indication: Product used for unknown indication
     Route: 058

REACTIONS (1)
  - No adverse event [Unknown]
